FAERS Safety Report 7232122-4 (Version None)
Quarter: 2011Q1

REPORT INFORMATION
  Report Type: 
  Country: None (occurrence: None)
  Receive Date: 20110119
  Receipt Date: 20110112
  Transmission Date: 20110831
  Serious: Yes (Other)
  Sender: FDA-Public Use
  Company Number: CY-BIOGENIDEC-2010BI043340

PATIENT
  Age: 29 Year
  Sex: Male
  Weight: 71 kg

DRUGS (2)
  1. TYSABRI [Suspect]
     Route: 042
     Dates: start: 20100601
  2. TYSABRI [Suspect]
     Indication: RELAPSING-REMITTING MULTIPLE SCLEROSIS
     Route: 042
     Dates: start: 20080812

REACTIONS (1)
  - PITYRIASIS ROSEA [None]
